FAERS Safety Report 16756480 (Version 7)
Quarter: 2025Q1

REPORT INFORMATION
  Report Type: Report from Study
  Country: DE (occurrence: DE)
  Receive Date: 20190829
  Receipt Date: 20250203
  Transmission Date: 20250408
  Serious: Yes (Hospitalization, Other)
  Sender: ALEXION PHARMACEUTICALS
  Company Number: 2019SF19796

PATIENT
  Weight: 66 kg

DRUGS (4)
  1. FULVESTRANT [Suspect]
     Active Substance: FULVESTRANT
     Indication: Breast cancer metastatic
  2. FULVESTRANT [Suspect]
     Active Substance: FULVESTRANT
  3. KISQALI [Suspect]
     Active Substance: RIBOCICLIB
     Indication: Breast cancer metastatic
  4. KISQALI [Suspect]
     Active Substance: RIBOCICLIB
     Indication: Hormone receptor positive HER2 negative breast cancer
     Dosage: 600 MG, QD (SCHEMA 21 DAYS INTAKE, THAN 7 DAYS PAUSE)

REACTIONS (22)
  - Aspartate aminotransferase increased [Recovering/Resolving]
  - Alanine aminotransferase increased [Recovering/Resolving]
  - Anaemia [Recovering/Resolving]
  - Abdominal wall abscess [Recovering/Resolving]
  - Blood urea increased [Recovering/Resolving]
  - Blood urea increased [Recovering/Resolving]
  - Breast cancer metastatic [Unknown]
  - Blood creatinine increased [Recovering/Resolving]
  - Blood uric acid increased [Recovering/Resolving]
  - Dyspnoea [Recovering/Resolving]
  - Diarrhoea [Recovered/Resolved]
  - Dental caries [Not Recovered/Not Resolved]
  - Enterocutaneous fistula [Not Recovered/Not Resolved]
  - Fistula [Unknown]
  - General physical health deterioration [Recovering/Resolving]
  - Impaired healing [Recovering/Resolving]
  - Metastases to peritoneum [Not Recovered/Not Resolved]
  - Malignant neoplasm progression [Unknown]
  - Nausea [Recovering/Resolving]
  - Pleural effusion [Recovering/Resolving]
  - Vomiting [Recovered/Resolved]
  - Weight decreased [Not Recovered/Not Resolved]
